FAERS Safety Report 21833627 (Version 5)
Quarter: 2023Q2

REPORT INFORMATION
  Report Type: Report from Study
  Country: US (occurrence: US)
  Receive Date: 20230107
  Receipt Date: 20230609
  Transmission Date: 20230722
  Serious: No
  Sender: FDA-Public Use
  Company Number: US-002147023-NVSC2023US003163

PATIENT
  Sex: Female

DRUGS (1)
  1. COSENTYX [Suspect]
     Active Substance: SECUKINUMAB
     Indication: Psoriasis
     Dosage: 300 MG, QW (QW FOR 5 WEEKS AND THEN QMO)
     Route: 058

REACTIONS (6)
  - Constipation [Unknown]
  - Arthralgia [Unknown]
  - Psoriasis [Unknown]
  - Pruritus [Unknown]
  - Skin hypertrophy [Unknown]
  - Pain in extremity [Unknown]
